APPROVED DRUG PRODUCT: GABAPENTIN
Active Ingredient: GABAPENTIN
Strength: 300MG
Dosage Form/Route: CAPSULE;ORAL
Application: A075435 | Product #002
Applicant: TEVA PHARMACEUTICALS USA
Approved: Oct 8, 2004 | RLD: No | RS: No | Type: DISCN